FAERS Safety Report 9945003 (Version 1)
Quarter: 2014Q1

REPORT INFORMATION
  Report Type: Report from Study
  Country: US (occurrence: US)
  Receive Date: 20140303
  Receipt Date: 20140303
  Transmission Date: 20141002
  Serious: No
  Sender: FDA-Public Use
  Company Number: US-ABBVIE-13P-163-1054547-00

PATIENT
  Age: 54 Year
  Sex: Female
  Weight: 65.83 kg

DRUGS (6)
  1. HUMIRA [Suspect]
     Indication: SJOGREN^S SYNDROME
     Dates: start: 20130126
  2. HUMIRA [Suspect]
     Indication: AUTOIMMUNE DISORDER
  3. HUMIRA [Suspect]
     Indication: EYE DISORDER
  4. CELLCEPT [Concomitant]
     Indication: LIVER DISORDER
  5. PREDNISONE [Concomitant]
     Indication: LIVER DISORDER
  6. MYCOPHENOLATE [Concomitant]

REACTIONS (2)
  - Off label use [Not Recovered/Not Resolved]
  - Nasopharyngitis [Not Recovered/Not Resolved]
